FAERS Safety Report 15403068 (Version 1)
Quarter: 2018Q3

REPORT INFORMATION
  Report Type: Report from Study
  Country: US (occurrence: US)
  Receive Date: 20180919
  Receipt Date: 20180919
  Transmission Date: 20181010
  Serious: Yes (Other)
  Sender: FDA-Public Use
  Company Number: US-B.I. PHARMACEUTICALS,INC./RIDGEFIELD-2018-BI-046306

PATIENT
  Age: 62 Year
  Sex: Female

DRUGS (1)
  1. AFATINIB [Suspect]
     Active Substance: AFATINIB
     Indication: LUNG ADENOCARCINOMA STAGE III
     Route: 065

REACTIONS (1)
  - Malignant neoplasm progression [Unknown]
